FAERS Safety Report 24574389 (Version 1)
Quarter: 2024Q4

REPORT INFORMATION
  Report Type: Spontaneous
  Country: US (occurrence: US)
  Receive Date: 20241104
  Receipt Date: 20241104
  Transmission Date: 20250114
  Serious: No
  Sender: ELI LILLY AND COMPANY
  Company Number: US-ELI_LILLY_AND_COMPANY-US202411000263

PATIENT
  Age: 28 Year
  Sex: Female

DRUGS (4)
  1. OMVOH [Suspect]
     Active Substance: MIRIKIZUMAB-MRKZ
     Indication: Colitis ulcerative
     Dosage: 200 MG, EVERY FOUR WEEKS
     Route: 065
  2. OMVOH [Suspect]
     Active Substance: MIRIKIZUMAB-MRKZ
     Indication: Colitis ulcerative
     Dosage: 200 MG, EVERY FOUR WEEKS
     Route: 065
  3. OMVOH [Suspect]
     Active Substance: MIRIKIZUMAB-MRKZ
     Dosage: 200 MG, EVERY FOUR WEEKS
     Route: 065
  4. OMVOH [Suspect]
     Active Substance: MIRIKIZUMAB-MRKZ
     Dosage: 200 MG, EVERY FOUR WEEKS
     Route: 065

REACTIONS (2)
  - Product dose omission issue [Unknown]
  - Injection site pain [Unknown]

NARRATIVE: CASE EVENT DATE: 20241001
